FAERS Safety Report 9031874 (Version 1)
Quarter: 2013Q1

REPORT INFORMATION
  Report Type: Spontaneous
  Country: BD (occurrence: BD)
  Receive Date: 20130125
  Receipt Date: 20130125
  Transmission Date: 20140127
  Serious: Yes (Death, Hospitalization, Other)
  Sender: FDA-Public Use
  Company Number: PHHY2013BD006582

PATIENT
  Age: 85 Year
  Sex: Female

DRUGS (2)
  1. ACLASTA [Suspect]
     Indication: OSTEOPOROSIS
     Dosage: ONCE YEARLY
     Route: 042
     Dates: start: 20110420
  2. ANAESTHETICS, GENERAL [Suspect]
     Indication: IRRITABILITY

REACTIONS (8)
  - Overdose [Fatal]
  - Temperature regulation disorder [Fatal]
  - Sensory disturbance [Fatal]
  - Diabetes mellitus [Unknown]
  - Amnesia [Unknown]
  - Blood pressure abnormal [Unknown]
  - Irritability [Unknown]
  - Drug ineffective [Unknown]
